FAERS Safety Report 9871130 (Version 2)
Quarter: 2014Q1

REPORT INFORMATION
  Report Type: Spontaneous
  Country: US (occurrence: US)
  Receive Date: 20140205
  Receipt Date: 20140205
  Transmission Date: 20141002
  Serious: Yes (Life-Threatening, Other)
  Sender: FDA-Public Use
  Company Number: US-GILEAD-2013-0074558

PATIENT
  Age: 49 Year
  Sex: Male
  Weight: 65.76 kg

DRUGS (11)
  1. STRIBILD [Suspect]
     Indication: HIV INFECTION
     Dosage: UNK
     Route: 048
     Dates: start: 20130216
  2. XANAX [Concomitant]
     Indication: ANXIETY
     Dosage: 1 MG, UNK
     Route: 048
  3. FENOFIBRATE [Concomitant]
     Indication: HYPERLIPIDAEMIA
     Dosage: 134 MG, UNK
     Route: 048
  4. ZOLPIDEM [Concomitant]
     Indication: INSOMNIA
     Dosage: 10 MG, UNK
     Route: 048
  5. FINASTERIDE [Concomitant]
     Indication: BENIGN PROSTATIC HYPERPLASIA
     Dosage: 5 MG, UNK
     Route: 048
  6. METOCLOPRAMIDE [Concomitant]
     Indication: IRRITABLE BOWEL SYNDROME
     Dosage: 10 MG, UNK
     Route: 048
  7. VICOPROFEN [Concomitant]
     Dosage: UNK
     Route: 048
     Dates: start: 20130215
  8. NUVIGIL [Concomitant]
     Dosage: 250 MG, QD
     Route: 048
  9. ADDERALL [Concomitant]
  10. PERCOCET                           /00446701/ [Concomitant]
  11. VICODIN [Concomitant]

REACTIONS (3)
  - Renal failure acute [Recovering/Resolving]
  - Weight decreased [Unknown]
  - Muscle atrophy [Unknown]
